FAERS Safety Report 18064975 (Version 1)
Quarter: 2020Q3

REPORT INFORMATION
  Report Type: Spontaneous
  Country: US (occurrence: US)
  Receive Date: 20200723
  Receipt Date: 20200723
  Transmission Date: 20201103
  Serious: Yes (Hospitalization)
  Sender: FDA-Public Use
  Company Number: None

PATIENT
  Age: 9 Year
  Sex: Male
  Weight: 31.95 kg

DRUGS (1)
  1. TAMIFLU [Suspect]
     Active Substance: OSELTAMIVIR PHOSPHATE
     Indication: INFLUENZA
     Route: 048
     Dates: start: 20190129, end: 20190131

REACTIONS (6)
  - Dysstasia [None]
  - Pain [None]
  - Movement disorder [None]
  - Cytokine storm [None]
  - Myositis [None]
  - Gait disturbance [None]

NARRATIVE: CASE EVENT DATE: 20190131
